APPROVED DRUG PRODUCT: LOPURIN
Active Ingredient: ALLOPURINOL
Strength: 300MG
Dosage Form/Route: TABLET;ORAL
Application: A071587 | Product #001 | TE Code: AB
Applicant: DR REDDYS LABORATORIES INC
Approved: Apr 2, 1987 | RLD: No | RS: No | Type: RX